FAERS Safety Report 6972078-2 (Version None)
Quarter: 2010Q3

REPORT INFORMATION
  Report Type: 
  Country: None (occurrence: None)
  Receive Date: 20100909
  Receipt Date: 20100831
  Transmission Date: 20110219
  Serious: Yes (Hospitalization, Other)
  Sender: FDA-Public Use
  Company Number: US-BIOGENIDEC-2010BI030863

PATIENT
  Age: 45 Year
  Sex: Female

DRUGS (4)
  1. AVONEX [Suspect]
     Indication: MULTIPLE SCLEROSIS
     Route: 030
     Dates: start: 19990301
  2. AVONEX [Suspect]
     Route: 030
     Dates: start: 20000201
  3. AVONEX [Suspect]
     Route: 030
     Dates: start: 20050711
  4. TYSABRI [Concomitant]
     Indication: MULTIPLE SCLEROSIS
     Route: 042
     Dates: start: 20050125, end: 20050220

REACTIONS (3)
  - COMA [None]
  - RENAL FAILURE [None]
  - STAPHYLOCOCCAL INFECTION [None]
